FAERS Safety Report 8019135-X (Version None)
Quarter: 2011Q4

REPORT INFORMATION
  Report Type: 
  Country: None (occurrence: None)
  Receive Date: 20111227
  Receipt Date: 20111212
  Transmission Date: 20120403
  Serious: Yes (Hospitalization)
  Sender: FDA-Public Use
  Company Number: UTC-013290

PATIENT
  Age: 61 Year
  Sex: Female
  Weight: 63.73 kg

DRUGS (3)
  1. DIURETICS (DIURETICS) [Concomitant]
  2. TYVASO [Suspect]
     Indication: PULMONARY ARTERIAL HYPERTENSION
     Dosage: 216 MCG (54 MCG,4 IN 1 D),INHALATION
     Route: 055
     Dates: start: 20100610
  3. LETAIRIS [Concomitant]

REACTIONS (3)
  - COUGH [None]
  - HYPOTENSION [None]
  - SPUTUM DISCOLOURED [None]
